FAERS Safety Report 8215759-5 (Version None)
Quarter: 2012Q1

REPORT INFORMATION
  Report Type: 
  Country: None (occurrence: None)
  Receive Date: 20120313
  Receipt Date: 20120227
  Transmission Date: 20120608
  Serious: Yes (Life-Threatening, Hospitalization)
  Sender: FDA-Public Use
  Company Number: 20120120

PATIENT
  Sex: Male

DRUGS (1)
  1. VENOFER [Suspect]
     Dosage: 400MG/ 250 ML NS

REACTIONS (1)
  - ACUTE PULMONARY OEDEMA [None]
